FAERS Safety Report 5026566-9 (Version None)
Quarter: 2006Q2

REPORT INFORMATION
  Report Type: 
  Country: None (occurrence: None)
  Receive Date: 20060615
  Receipt Date: 20050714
  Transmission Date: 20061013
  Serious: Yes (Death)
  Sender: FDA-Public Use
  Company Number: US-ROCHE-410830

PATIENT
  Age: 69 Year
  Sex: Female
  Weight: 104 kg

DRUGS (13)
  1. MYCOPHENOLATE MOFETIL [Suspect]
     Indication: MYASTHENIA GRAVIS
     Route: 065
  2. FUROSEMIDE [Concomitant]
  3. SPIROLACTONE [Concomitant]
  4. AVANDAMET [Concomitant]
  5. PREMARIN [Concomitant]
  6. LIPITOR [Concomitant]
  7. POTASSIUM [Concomitant]
  8. XANAX [Concomitant]
  9. ALBUTEROL [Concomitant]
  10. MULTIVITAMIN NOS [Concomitant]
  11. IRON [Concomitant]
  12. NEXIUM [Concomitant]
  13. CIPRO [Concomitant]
     Indication: CELLULITIS

REACTIONS (2)
  - CARDIAC FAILURE CONGESTIVE [None]
  - RENAL FAILURE CHRONIC [None]
